FAERS Safety Report 6536901-8 (Version None)
Quarter: 2010Q1

REPORT INFORMATION
  Report Type: 
  Country: None (occurrence: None)
  Receive Date: 20100113
  Receipt Date: 20100104
  Transmission Date: 20100710
  Serious: Yes (Hospitalization)
  Sender: FDA-Public Use
  Company Number: GB-GILEAD-2009-0020522

PATIENT
  Age: 46 Year
  Sex: Female

DRUGS (2)
  1. TRUVADA [Suspect]
     Indication: HIV INFECTION
     Dates: start: 20080416, end: 20080616
  2. EFAVIRENZ [Suspect]
     Indication: HIV INFECTION
     Route: 048
     Dates: start: 20080416, end: 20080616

REACTIONS (3)
  - ANXIETY [None]
  - HALLUCINATION [None]
  - PARANOIA [None]
